FAERS Safety Report 9728942 (Version 1)
Quarter: 2013Q4

REPORT INFORMATION
  Report Type: Spontaneous
  Country: AR (occurrence: AR)
  Receive Date: 20131204
  Receipt Date: 20131204
  Transmission Date: 20140711
  Serious: Yes (Other)
  Sender: FDA-Public Use
  Company Number: AR-PFIZER INC-2013344439

PATIENT
  Age: 10 Year
  Sex: Female

DRUGS (1)
  1. RAPAMUNE [Suspect]
     Indication: PROPHYLAXIS AGAINST TRANSPLANT REJECTION
     Dosage: 1 MG, 1X/DAY

REACTIONS (4)
  - Convulsion [Recovered/Resolved]
  - Sinusitis [Recovered/Resolved]
  - Ear pain [Recovered/Resolved]
  - Off label use [Not Recovered/Not Resolved]
